FAERS Safety Report 15954880 (Version 2)
Quarter: 2021Q4

REPORT INFORMATION
  Report Type: Spontaneous
  Country: ES (occurrence: ES)
  Receive Date: 20190213
  Receipt Date: 20211007
  Transmission Date: 20220303
  Serious: Yes (Hospitalization, Other)
  Sender: FDA-Public Use
  Company Number: ES-AEMPS-447035

PATIENT
  Age: 95 Year
  Sex: Female

DRUGS (2)
  1. ACETAMINOPHEN [Suspect]
     Active Substance: ACETAMINOPHEN
     Indication: Product used for unknown indication
     Dosage: UNK
     Route: 048
     Dates: start: 20180108, end: 20180115
  2. OMEPRAZOLE [Suspect]
     Active Substance: OMEPRAZOLE
     Indication: Product used for unknown indication
     Dosage: 1 DOSAGE FORM, ONCE A DAY (1 CP DIA)
     Route: 048
     Dates: start: 20180108, end: 20180115

REACTIONS (4)
  - Splenic infarction [Recovered/Resolved]
  - Truncus coeliacus thrombosis [Recovered/Resolved]
  - Hepatic infarction [Recovered/Resolved]
  - Mesenteric artery thrombosis [Recovered/Resolved]

NARRATIVE: CASE EVENT DATE: 20180115
